FAERS Safety Report 6511372-6 (Version None)
Quarter: 2009Q4

REPORT INFORMATION
  Report Type: 
  Country: None (occurrence: None)
  Receive Date: 20091222
  Receipt Date: 20090306
  Transmission Date: 20100525
  Serious: No
  Sender: FDA-Public Use
  Company Number: US-ASTRAZENECA-2009UW05996

PATIENT
  Age: 23883 Day
  Sex: Male
  Weight: 90.7 kg

DRUGS (2)
  1. CRESTOR [Suspect]
     Indication: HYPERCHOLESTEROLAEMIA
     Route: 048
     Dates: start: 20090305
  2. MICARDIS [Suspect]
     Indication: HYPERTENSION

REACTIONS (3)
  - FLUSHING [None]
  - HEART RATE INCREASED [None]
  - PALPITATIONS [None]
